FAERS Safety Report 24903128 (Version 2)
Quarter: 2025Q1

REPORT INFORMATION
  Report Type: Spontaneous
  Country: ES (occurrence: ES)
  Receive Date: 20250130
  Receipt Date: 20250221
  Transmission Date: 20250409
  Serious: Yes (Other)
  Sender: RANBAXY
  Company Number: ES-SUN PHARMACEUTICAL INDUSTRIES LTD-2025RR-491051

PATIENT
  Age: 46 Year
  Sex: Female

DRUGS (4)
  1. PIPERACILLIN SODIUM\TAZOBACTAM SODIUM [Interacting]
     Active Substance: PIPERACILLIN SODIUM\TAZOBACTAM SODIUM
     Indication: Pneumonia klebsiella
     Route: 040
     Dates: start: 20240725, end: 20240730
  2. MEROPENEM [Interacting]
     Active Substance: MEROPENEM
     Indication: Pneumonia klebsiella
     Route: 040
     Dates: start: 20240812, end: 20240820
  3. ERTAPENEM [Interacting]
     Active Substance: ERTAPENEM
     Indication: Pneumonia klebsiella
     Route: 040
     Dates: start: 20240810, end: 20240812
  4. MEROPENEM [Concomitant]
     Active Substance: MEROPENEM
     Indication: Pneumonia klebsiella
     Route: 040
     Dates: start: 20240730, end: 20240810

REACTIONS (1)
  - Clostridium difficile colitis [Recovered/Resolved]

NARRATIVE: CASE EVENT DATE: 20240828
